FAERS Safety Report 9030254 (Version 2)
Quarter: 2013Q1

REPORT INFORMATION
  Report Type: Spontaneous
  Country: JP (occurrence: JP)
  Receive Date: 20130122
  Receipt Date: 20130207
  Transmission Date: 20140127
  Serious: Yes (Other)
  Sender: FDA-Public Use
  Company Number: JP-ASTRAZENECA-2013SE03420

PATIENT
  Age: 58 Year
  Sex: Female

DRUGS (10)
  1. SEROQUEL [Suspect]
     Indication: BIPOLAR I DISORDER
     Route: 048
  2. ZYPREXA [Suspect]
     Indication: MANIA
     Route: 048
     Dates: start: 201011, end: 20101207
  3. ZYPREXA [Suspect]
     Indication: BIPOLAR I DISORDER
     Route: 048
     Dates: start: 201011, end: 20101207
  4. ZYPREXA [Suspect]
     Indication: MANIA
     Route: 048
     Dates: start: 20110713, end: 20110725
  5. ZYPREXA [Suspect]
     Indication: BIPOLAR I DISORDER
     Route: 048
     Dates: start: 20110713, end: 20110725
  6. LITHIUM CARBONATE [Concomitant]
     Indication: BIPOLAR I DISORDER
  7. GOODMIN [Concomitant]
     Indication: BIPOLAR I DISORDER
  8. JZOLOFT [Concomitant]
     Indication: BIPOLAR I DISORDER
  9. SENNOSIDE [Concomitant]
     Indication: BIPOLAR I DISORDER
  10. MARZULENE [Concomitant]

REACTIONS (4)
  - Eosinophilia [Recovered/Resolved]
  - Oedema peripheral [Recovered/Resolved]
  - Hepatic function abnormal [Recovered/Resolved]
  - Off label use [Unknown]
